FAERS Safety Report 6918601-5 (Version None)
Quarter: 2010Q3

REPORT INFORMATION
  Report Type: 
  Country: None (occurrence: None)
  Receive Date: 20100811
  Receipt Date: 20100727
  Transmission Date: 20110219
  Serious: Yes (Hospitalization)
  Sender: FDA-Public Use
  Company Number: ES-JNJFOC-20100801941

PATIENT
  Age: 73 Year
  Sex: Female

DRUGS (4)
  1. ZALDIAR [Suspect]
     Indication: MUSCULOSKELETAL PAIN
     Route: 048
  2. ACTONEL [Concomitant]
  3. HALCION [Concomitant]
  4. NATECAL D [Concomitant]

REACTIONS (4)
  - DIZZINESS [None]
  - HYPERTENSION [None]
  - HYPERVENTILATION [None]
  - NAUSEA [None]
